FAERS Safety Report 9197613 (Version 2)
Quarter: 2013Q2

REPORT INFORMATION
  Report Type: Spontaneous
  Country: IT (occurrence: IT)
  Receive Date: 20130328
  Receipt Date: 20130501
  Transmission Date: 20140414
  Serious: Yes (Hospitalization)
  Sender: FDA-Public Use
  Company Number: IT-GLAXOSMITHKLINE-B0879052A

PATIENT
  Age: 30 Year
  Sex: Male

DRUGS (2)
  1. RYTMONORM [Suspect]
     Indication: TACHYCARDIA
     Dosage: 1UD PER DAY
     Route: 040
     Dates: start: 20130317, end: 20130317
  2. TORADOL (KETOROLAC TROMETHAMINE) [Suspect]
     Indication: ABDOMINAL PAIN UPPER
     Dosage: 1UD PER DAY
     Route: 042
     Dates: start: 20130317, end: 20130317

REACTIONS (1)
  - Eyelid oedema [Recovered/Resolved]
